FAERS Safety Report 16508761 (Version 1)
Quarter: 2019Q3

REPORT INFORMATION
  Report Type: Spontaneous
  Country: FR (occurrence: FR)
  Receive Date: 20190701
  Receipt Date: 20190701
  Transmission Date: 20191004
  Serious: Yes (Hospitalization)
  Sender: FDA-Public Use
  Company Number: FR-MYLANLABS-2019M1059754

PATIENT
  Age: 83 Year
  Sex: Female
  Weight: 78 kg

DRUGS (2)
  1. LEPTICUR [Interacting]
     Active Substance: TROPATEPINE HYDROCHLORIDE
     Indication: TREMOR
     Dosage: 30 MILLIGRAM, QD
     Route: 048
     Dates: start: 20181205, end: 20181207
  2. CLOMIPRAMINE [Suspect]
     Active Substance: CLOMIPRAMINE
     Indication: DEPRESSION
     Dosage: UNK
     Route: 048
     Dates: end: 20181211

REACTIONS (7)
  - Fall [Recovered/Resolved]
  - Confusional state [Recovered/Resolved]
  - Tremor [Recovered/Resolved]
  - Urinary retention [Recovered/Resolved]
  - Balance disorder [Recovered/Resolved]
  - Myoclonus [Recovered/Resolved]
  - Drug interaction [Unknown]

NARRATIVE: CASE EVENT DATE: 20181205
